FAERS Safety Report 5170912-2 (Version None)
Quarter: 2006Q4

REPORT INFORMATION
  Report Type: 
  Country: None (occurrence: None)
  Receive Date: 20061213
  Receipt Date: 20061102
  Transmission Date: 20070319
  Serious: Yes (Hospitalization)
  Sender: FDA-Public Use
  Company Number: PHHO2006SK18191

PATIENT
  Age: 42 Year
  Sex: Female
  Weight: 61.7 kg

DRUGS (2)
  1. CERTICAN [Suspect]
     Indication: RENAL TRANSPLANT
     Dosage: UNK, UNK
     Dates: start: 20060720
  2. NEORAL [Suspect]
     Indication: RENAL TRANSPLANT
     Dosage: UNK, UNK
     Route: 048
     Dates: start: 20060720

REACTIONS (1)
  - NEPHROPATHY TOXIC [None]
